FAERS Safety Report 4738083-1 (Version None)
Quarter: 2005Q3

REPORT INFORMATION
  Report Type: 
  Country: None (occurrence: None)
  Receive Date: 20050809
  Receipt Date: 20050712
  Transmission Date: 20060218
  Serious: Yes (Hospitalization)
  Sender: FDA-Public Use
  Company Number: 200512031EU

PATIENT
  Age: 69 Year
  Sex: Female
  Weight: 48 kg

DRUGS (3)
  1. FUROSEMIDE [Suspect]
     Indication: CARDIAC FAILURE CONGESTIVE
     Route: 042
  2. GLUCOSE [Concomitant]
     Indication: HYPOGLYCAEMIA
     Dosage: DOSE: UNK
  3. METOPROLOL [Concomitant]
     Indication: TACHYCARDIA
     Route: 042

REACTIONS (10)
  - AGITATION [None]
  - ATRIAL FIBRILLATION [None]
  - BODY TEMPERATURE INCREASED [None]
  - DISSEMINATED INTRAVASCULAR COAGULATION [None]
  - EJECTION FRACTION ABNORMAL [None]
  - HEPATIC FUNCTION ABNORMAL [None]
  - HYPERTHYROIDISM [None]
  - HYPOTENSION [None]
  - TACHYCARDIA [None]
  - THROMBOCYTOPENIA [None]
